FAERS Safety Report 23015170 (Version 1)
Quarter: 2023Q4

REPORT INFORMATION
  Report Type: Spontaneous
  Country: US (occurrence: None)
  Receive Date: 20231002
  Receipt Date: 20231002
  Transmission Date: 20240110
  Serious: Yes (Hospitalization)
  Sender: FDA-Public Use
  Company Number: None

PATIENT
  Age: 65 Year
  Sex: Female

DRUGS (4)
  1. OPSUMIT [Suspect]
     Active Substance: MACITENTAN
     Indication: Therapy cessation
     Dosage: FREQUENCY : DAILY;?
     Route: 048
     Dates: start: 201611
  2. TADALAFIL [Concomitant]
     Active Substance: TADALAFIL
  3. VELETRI SDV [Concomitant]
  4. ADEMPAS [Concomitant]
     Active Substance: RIOCIGUAT

REACTIONS (1)
  - Therapeutic procedure [None]

NARRATIVE: CASE EVENT DATE: 20231001
